FAERS Safety Report 9018034 (Version 1)
Quarter: 2013Q1

REPORT INFORMATION
  Report Type: Spontaneous
  Country: US (occurrence: None)
  Receive Date: 20130110
  Receipt Date: 20130110
  Transmission Date: 20140127
  Serious: No
  Sender: FDA-Public Use
  Company Number: None

PATIENT
  Sex: Female
  Weight: 66.2 kg

DRUGS (2)
  1. CISPLATIN [Suspect]
  2. GEMCITABINE HYDROCHLORIDE [Suspect]

REACTIONS (2)
  - Headache [None]
  - Platelet count decreased [None]
